FAERS Safety Report 19152755 (Version 1)
Quarter: 2021Q2

REPORT INFORMATION
  Report Type: Spontaneous
  Country: US (occurrence: US)
  Receive Date: 20210417
  Receipt Date: 20210417
  Transmission Date: 20210717
  Serious: No
  Sender: FDA-Public Use
  Company Number: None

PATIENT
  Age: 49 Year
  Sex: Female
  Weight: 94.5 kg

DRUGS (7)
  1. ZINC. [Concomitant]
     Active Substance: ZINC
  2. TRULANCE [Suspect]
     Active Substance: PLECANATIDE
     Indication: CONSTIPATION
     Dosage: ?          QUANTITY:1 TABLET(S);?
     Route: 048
     Dates: start: 20210416, end: 20210416
  3. LORAZEPAM. [Concomitant]
     Active Substance: LORAZEPAM
  4. PRAZOSIN. [Concomitant]
     Active Substance: PRAZOSIN
  5. PROBIOTICS [Concomitant]
     Active Substance: PROBIOTICS NOS
  6. VITAMIN D3 [Concomitant]
     Active Substance: CHOLECALCIFEROL
  7. MULTIVITAMIN B12 [Concomitant]

REACTIONS (2)
  - Nasal congestion [None]
  - Oropharyngeal pain [None]

NARRATIVE: CASE EVENT DATE: 20210416
